FAERS Safety Report 7111645-2 (Version None)
Quarter: 2010Q4

REPORT INFORMATION
  Report Type: 
  Country: None (occurrence: None)
  Receive Date: 20101118
  Receipt Date: 20100820
  Transmission Date: 20110411
  Serious: Yes (Other)
  Sender: FDA-Public Use
  Company Number: PHHY2010US55426

PATIENT
  Sex: Female

DRUGS (10)
  1. EXJADE [Suspect]
     Indication: IRON OVERLOAD
     Dosage: 1000 MG, QD
     Route: 048
     Dates: start: 20100506, end: 20100605
  2. EXJADE [Suspect]
     Dosage: 500 MG, QD
     Route: 048
  3. PRILOSEC [Concomitant]
     Dosage: 20 MG QD
  4. PROCRIT [Concomitant]
     Dosage: 60000 UNITS ONCE MONTHLY
  5. RED BLOOD CELLS [Concomitant]
     Dosage: UNK
     Dates: end: 20100714
  6. HYDROCORTISONE [Concomitant]
     Dosage: 100 MG THREE TIMES A WEEK PRIOR TO PLATELET TRANSFUSIONS
  7. PLATELETS [Concomitant]
  8. ENTEROCORT [Suspect]
  9. PREDNISOLONE [Suspect]
     Dosage: 60 MG QD
  10. PREDNISOLONE [Suspect]
     Dosage: 10 MG QD

REACTIONS (18)
  - ANISOCYTOSIS [None]
  - AZOTAEMIA [None]
  - BLOOD CREATININE INCREASED [None]
  - CHOLESTASIS [None]
  - CONTUSION [None]
  - CUSHINGOID [None]
  - DECREASED APPETITE [None]
  - DIARRHOEA [None]
  - ECCHYMOSIS [None]
  - ERYTHROPOIESIS ABNORMAL [None]
  - HAEMORRHAGE [None]
  - LEUKOPENIA [None]
  - LIVER FUNCTION TEST ABNORMAL [None]
  - LYMPHOPENIA [None]
  - MARROW HYPERPLASIA [None]
  - NEUTROPENIA [None]
  - NORMOCHROMIC NORMOCYTIC ANAEMIA [None]
  - WEIGHT INCREASED [None]
